FAERS Safety Report 21173692 (Version 1)
Quarter: 2022Q3

REPORT INFORMATION
  Report Type: Spontaneous
  Country: US (occurrence: US)
  Receive Date: 20220804
  Receipt Date: 20220804
  Transmission Date: 20221027
  Serious: No
  Sender: FDA-Public Use
  Company Number: US-PERRIGO-21US028960

PATIENT
  Sex: Female

DRUGS (2)
  1. LORATADINE [Suspect]
     Active Substance: LORATADINE
     Indication: Product used for unknown indication
     Dosage: 10 MG, SINGLE AT 1800
     Route: 048
     Dates: start: 20210929, end: 20210929
  2. LORATADINE [Suspect]
     Active Substance: LORATADINE
     Dosage: 10 MG, SINGLE AT 1145
     Route: 048
     Dates: start: 20210930, end: 20210930

REACTIONS (1)
  - Inappropriate schedule of product administration [Recovered/Resolved]

NARRATIVE: CASE EVENT DATE: 20210930
